FAERS Safety Report 11673867 (Version 1)
Quarter: 2015Q4

REPORT INFORMATION
  Report Type: Other
  Country: US (occurrence: US)
  Receive Date: 20151028
  Receipt Date: 20151028
  Transmission Date: 20160304
  Serious: Yes (Other)
  Sender: FDA-Public Use
  Company Number: US-COR_00413_2015

PATIENT
  Age: 66 Year
  Sex: Female

DRUGS (3)
  1. PEMETREXED [Suspect]
     Active Substance: PEMETREXED
     Dosage: 2 CYCLES
  2. PEMETREXED [Suspect]
     Active Substance: PEMETREXED
     Indication: ADENOCARCINOMA
     Dosage: FOUR CYCLES
  3. CARBOPLATIN. [Suspect]
     Active Substance: CARBOPLATIN
     Indication: ADENOCARCINOMA
     Dosage: FOUR CYCLES

REACTIONS (5)
  - Hypercalcaemia [Unknown]
  - Disease progression [Unknown]
  - Squamous cell carcinoma [Unknown]
  - Paraneoplastic syndrome [Unknown]
  - Drug resistance [Unknown]
